FAERS Safety Report 5369885-9 (Version None)
Quarter: 2007Q2

REPORT INFORMATION
  Report Type: 
  Country: None (occurrence: None)
  Receive Date: 20070621
  Receipt Date: 20070605
  Transmission Date: 20071010
  Serious: Yes (Hospitalization)
  Sender: FDA-Public Use
  Company Number: VNL_00609_2007

PATIENT
  Age: 47 Year
  Sex: Male

DRUGS (2)
  1. APOMORPHINE (APOMORPHINE) [Suspect]
     Indication: PARKINSON'S DISEASE
     Dosage: SUBCUTANEOUS
     Route: 058
  2. LEVODOPA [Concomitant]

REACTIONS (4)
  - ABNORMAL BEHAVIOUR [None]
  - HYPERSEXUALITY [None]
  - ILL-DEFINED DISORDER [None]
  - MOVEMENT DISORDER [None]
